FAERS Safety Report 7884116-3 (Version None)
Quarter: 2011Q4

REPORT INFORMATION
  Report Type: 
  Country: None (occurrence: None)
  Receive Date: 20111102
  Receipt Date: 20111024
  Transmission Date: 20120403
  Serious: Yes (Other)
  Sender: FDA-Public Use
  Company Number: GB-GLAXOSMITHKLINE-B0757547A

PATIENT
  Age: 67 Year
  Sex: Male

DRUGS (2)
  1. NICOTINE [Suspect]
     Route: 048
     Dates: start: 20110914, end: 20110914
  2. NICOTINE [Suspect]
     Indication: SMOKING CESSATION THERAPY
     Route: 048
     Dates: start: 20110910, end: 20110910

REACTIONS (1)
  - OEDEMA MUCOSAL [None]
